FAERS Safety Report 6873428-8 (Version None)
Quarter: 2010Q3

REPORT INFORMATION
  Report Type: 
  Country: None (occurrence: None)
  Receive Date: 20100723
  Receipt Date: 20090125
  Transmission Date: 20110219
  Serious: No
  Sender: FDA-Public Use
  Company Number: US-PFIZER INC-2009162209

PATIENT
  Sex: Female

DRUGS (1)
  1. CHANTIX [Suspect]
     Indication: SMOKING CESSATION THERAPY

REACTIONS (7)
  - ABNORMAL DREAMS [None]
  - DYSARTHRIA [None]
  - HEADACHE [None]
  - LACK OF SPONTANEOUS SPEECH [None]
  - NAUSEA [None]
  - SLEEP DISORDER [None]
  - VERTIGO [None]
